FAERS Safety Report 9828255 (Version 8)
Quarter: 2018Q1

REPORT INFORMATION
  Report Type: Spontaneous
  Country: US (occurrence: US)
  Receive Date: 20140117
  Receipt Date: 20180316
  Transmission Date: 20180509
  Serious: Yes (Other)
  Sender: FDA-Public Use
  Company Number: US-PFIZER INC-2014015621

PATIENT
  Age: 65 Year
  Sex: Female
  Weight: 97.51 kg

DRUGS (39)
  1. PEPCID [Concomitant]
     Active Substance: FAMOTIDINE
     Indication: GASTRIC ULCER
     Dosage: UNK
  2. VITAMIN D [Concomitant]
     Active Substance: CHOLECALCIFEROL
     Indication: OSTEOPOROSIS
     Dosage: 50000 IU, WEEKLY
     Dates: start: 20090116
  3. EPIPEN [Concomitant]
     Active Substance: EPINEPHRINE
     Dosage: 0.3 MG/0.3 ML
     Route: 030
     Dates: start: 20151218
  4. NORTRIPTYLINE HCL [Concomitant]
     Active Substance: NORTRIPTYLINE HYDROCHLORIDE
     Dosage: 30 MG, DAILY (10MG CAPSULE 3 (THREE) ORAL DAILY)
     Route: 048
     Dates: start: 20170613
  5. CELEBREX [Suspect]
     Active Substance: CELECOXIB
     Indication: OSTEOARTHRITIS
     Dosage: 200 MG, 2X/DAY
     Route: 048
  6. FAMOTIDINE. [Concomitant]
     Active Substance: FAMOTIDINE
     Dosage: 20 MG, 2X/DAY
     Route: 048
     Dates: start: 20110131
  7. COUMADIN [Concomitant]
     Active Substance: WARFARIN SODIUM
     Dosage: 5 MG, DAILY [5 MG DAILY WITH 7.5MG ON TUES AND FRIDAYS]
     Route: 048
     Dates: start: 20170814
  8. EPIPEN [Concomitant]
     Active Substance: EPINEPHRINE
     Indication: ANAPHYLACTIC REACTION
     Dosage: 0.3 MG/0.3 ML
     Route: 030
     Dates: start: 20120216
  9. PROAIR HFA [Concomitant]
     Active Substance: ALBUTEROL SULFATE
     Indication: WHEEZING
  10. LYRICA [Suspect]
     Active Substance: PREGABALIN
     Indication: FIBROMYALGIA
     Dosage: 75MG IN THE MORNING AND 150 MG IN THE EVENING
     Route: 048
  11. LYRICA [Suspect]
     Active Substance: PREGABALIN
     Indication: COMPLEX REGIONAL PAIN SYNDROME
     Dosage: 225 MG, DAILY [LYRICA 75 MG, 1 CAP OF AM, 2 CAPS OF PM, PO]
     Route: 048
     Dates: start: 20130108, end: 20180208
  12. CALCIUM [Concomitant]
     Active Substance: CALCIUM
     Indication: OSTEOPOROSIS
     Dosage: 500 MG, 3X/DAY
     Dates: start: 20090116
  13. VITAMIN B COMPLEX [Concomitant]
     Active Substance: CYANOCOBALAMIN\DEXPANTHENOL\NIACINAMIDE\PYRIDOXINE HYDROCHLORIDE\RIBOFLAVIN 5^-PHOSPHATE SODIUM\THIAMINE HYDROCHLORIDE\VITAMIN B COMPLEX
     Dosage: UNK, DAILY
     Route: 048
  14. IPRATROPIUM BROMIDE AND ALBUTEROL SULFATE [Concomitant]
     Active Substance: ALBUTEROL SULFATE\IPRATROPIUM BROMIDE
     Dosage: UNK, AS NEEDED [IPRATROPIUM BROMIDE: 0.5MG, SALBUTAMOL SULFATE: 2.5 (3) MG](1 INHALATION EVERY 6HRS)
     Route: 055
     Dates: start: 20161123
  15. LYRICA [Suspect]
     Active Substance: PREGABALIN
     Indication: NEUROPATHY PERIPHERAL
     Dosage: 75 MG, 2X/DAY
     Dates: start: 20110207, end: 20130107
  16. SINGULAIR [Concomitant]
     Active Substance: MONTELUKAST SODIUM
     Dosage: 10 MG, 1X/DAY
     Route: 048
     Dates: start: 20170822
  17. COUMADIN [Concomitant]
     Active Substance: WARFARIN SODIUM
     Dosage: 5 MG, 1X/DAY
  18. COUMADIN [Concomitant]
     Active Substance: WARFARIN SODIUM
     Dosage: 7.5 MG  (5 MG DAILY WITH 7.5MG ON TUES AND FRIDAYS)
     Route: 048
     Dates: start: 20170814
  19. LORAZEPAM. [Concomitant]
     Active Substance: LORAZEPAM
     Indication: ANXIETY
     Dosage: 0.5 MG, AS NEEDED (1 ORAL TID PRN )
     Route: 048
     Dates: start: 20120120
  20. ADVAIR DISKUS [Concomitant]
     Active Substance: FLUTICASONE PROPIONATE\SALMETEROL XINAFOATE
     Indication: ASTHMA
     Dosage: 250-50 MCG/DOSE, 1 INHALATION TWICE DAILY
     Dates: start: 20131119
  21. HYDROCODONE W/ACETAMINOPHEN [Concomitant]
     Active Substance: ACETAMINOPHEN\HYDROCODONE BITARTRATE
     Dosage: UNK, AS NEEDED [HYDROCODONE BITARTRATE: 5MG, PARACETAMOL: 325MG]
     Route: 048
     Dates: start: 20141219
  22. IPRATROPIUM BROMIDE. [Concomitant]
     Active Substance: IPRATROPIUM BROMIDE
     Indication: CHRONIC OBSTRUCTIVE PULMONARY DISEASE
     Dosage: UNK (NEBULIZER)
     Route: 055
  23. ALBUTEROL SULFATE. [Concomitant]
     Active Substance: ALBUTEROL SULFATE
     Indication: CHRONIC OBSTRUCTIVE PULMONARY DISEASE
     Dosage: UNK (NEBULIZER)
     Route: 055
  24. DULOXETINE HCL [Concomitant]
     Active Substance: DULOXETINE HYDROCHLORIDE
     Dosage: 60 MG, DAILY (60MG CAPSULE DR PART 1 (ONE) ORAL DAILY WITH 30MG FOR TOTAL OF 90MG)
     Route: 048
     Dates: start: 20170111
  25. DULOXETINE HCL [Concomitant]
     Active Substance: DULOXETINE HYDROCHLORIDE
     Dosage: 30 MG, UNK (30MG CAPSULE DR PART 1 (ONE) ORAL 1 TABLET WITH 60MG DR FOR TOTAL 90MG)
     Route: 048
     Dates: start: 20161108
  26. LORATADINE. [Concomitant]
     Active Substance: LORATADINE
     Indication: ASTHMA
     Dosage: 10 MG, DAILY
     Route: 048
     Dates: start: 20110325
  27. HYDROCODONE W/ACETAMINOPHEN [Concomitant]
     Active Substance: ACETAMINOPHEN\HYDROCODONE BITARTRATE
     Indication: PAIN
     Dosage: 5-500 MG
     Route: 048
  28. SINGULAIR [Concomitant]
     Active Substance: MONTELUKAST SODIUM
     Dosage: 10 MG, 1X/DAY
     Dates: start: 20140303
  29. PROAIR HFA [Concomitant]
     Active Substance: ALBUTEROL SULFATE
     Indication: COUGH
     Dosage: 108 MCG/ACT, 1-2 INHALATIONS Q 4-6 HOURS PRN
     Dates: start: 20140204
  30. FEXOFENADINE HCL [Concomitant]
     Active Substance: FEXOFENADINE HYDROCHLORIDE
     Indication: RHINITIS ALLERGIC
     Dosage: 180 MG, DAILY
     Route: 048
     Dates: start: 20120120
  31. FOLIC ACID. [Concomitant]
     Active Substance: FOLIC ACID
     Dosage: UNK, DAILY
     Route: 048
  32. PROAIR HFA [Concomitant]
     Active Substance: ALBUTEROL SULFATE
     Indication: COUGH
     Dosage: UNK, AS NEEDED [(108 (90 BASE) MCG/ACT AEROSOL SAIN 1-2 INHALATION Q4-6 HOURS PRN]
     Route: 055
     Dates: start: 20140104
  33. PROAIR HFA [Concomitant]
     Active Substance: ALBUTEROL SULFATE
     Indication: WHEEZING
  34. LYRICA [Suspect]
     Active Substance: PREGABALIN
     Dosage: 225 MG, DAILY [75MG CAPSULE 1 ORAL PO QAM AND 2 PO QPM]
     Route: 048
     Dates: start: 20170425
  35. COUMADIN [Concomitant]
     Active Substance: WARFARIN SODIUM
     Indication: THROMBOSIS
     Dosage: 5 MG (ONE) TABLET 5 MG DAILY WITH 7.5 ON TUESDAYS AND FRIDAYS
     Dates: start: 20130108
  36. NORTRIPTYLINE [Concomitant]
     Active Substance: NORTRIPTYLINE
     Dosage: 10MG 2 (TWO) CAPSULE, DAILY
     Dates: start: 20140107
  37. PAROXETINE HYDROCHLORIDE. [Concomitant]
     Active Substance: PAROXETINE HYDROCHLORIDE
     Dosage: 5 MG, 1X/DAY
     Dates: start: 20131217
  38. PANTOPRAZOLE SODIUM. [Concomitant]
     Active Substance: PANTOPRAZOLE SODIUM
     Dosage: 40 MG, 2X/DAY
     Route: 048
     Dates: start: 20170914
  39. DULERA [Concomitant]
     Active Substance: FORMOTEROL FUMARATE DIHYDRATE\MOMETASONE FUROATE
     Dosage: 2 DF, 2X/DAY [FORMOTEROL FUMARATE: 5MCG; MOMETASONE FUROATE: 100 MCG]
     Dates: start: 20170517

REACTIONS (21)
  - Concussion [Recovered/Resolved with Sequelae]
  - Contusion [Unknown]
  - Headache [Unknown]
  - Dysphemia [Unknown]
  - Mental disorder [Unknown]
  - Dizziness [Unknown]
  - Visual impairment [Unknown]
  - Haematoma [Unknown]
  - Loss of consciousness [Unknown]
  - Intentional product misuse [Unknown]
  - Nausea [Unknown]
  - Malaise [Unknown]
  - Post concussion syndrome [Unknown]
  - Head injury [Recovered/Resolved with Sequelae]
  - Pain [Unknown]
  - Viral upper respiratory tract infection [Unknown]
  - Pain in extremity [Unknown]
  - Post-traumatic neck syndrome [Unknown]
  - Fall [Recovered/Resolved with Sequelae]
  - Headache [Not Recovered/Not Resolved]
  - Amnesia [Unknown]

NARRATIVE: CASE EVENT DATE: 201401
